FAERS Safety Report 12798321 (Version 2)
Quarter: 2016Q4

REPORT INFORMATION
  Report Type: Spontaneous
  Country: US (occurrence: US)
  Receive Date: 20160930
  Receipt Date: 20161019
  Transmission Date: 20170207
  Serious: No
  Sender: FDA-Public Use
  Company Number: US-BAYER-2016-183410

PATIENT
  Age: 71 Year
  Sex: Female
  Weight: 75.74 kg

DRUGS (3)
  1. MIRALAX [Suspect]
     Active Substance: POLYETHYLENE GLYCOL 3350
     Indication: GASTROINTESTINAL DISORDER
     Dosage: 1 DF, UNK
     Route: 048
     Dates: start: 201608, end: 20160919
  2. SIMVASTATIN. [Concomitant]
     Active Substance: SIMVASTATIN
     Dosage: UNK
  3. METOPROLOL. [Concomitant]
     Active Substance: METOPROLOL
     Dosage: UNK

REACTIONS (10)
  - Feeling cold [Recovered/Resolved with Sequelae]
  - Cold sweat [Recovered/Resolved with Sequelae]
  - Malaise [Recovered/Resolved with Sequelae]
  - Feeling hot [Recovered/Resolved with Sequelae]
  - Asthenia [Recovered/Resolved with Sequelae]
  - Abdominal pain upper [Recovered/Resolved with Sequelae]
  - Infrequent bowel movements [Recovered/Resolved with Sequelae]
  - Nausea [Not Recovered/Not Resolved]
  - Malaise [Recovered/Resolved with Sequelae]
  - Adverse event [Recovered/Resolved with Sequelae]

NARRATIVE: CASE EVENT DATE: 201608
